FAERS Safety Report 19433078 (Version 4)
Quarter: 2021Q3

REPORT INFORMATION
  Report Type: Spontaneous
  Country: IT (occurrence: IT)
  Receive Date: 20210618
  Receipt Date: 20210810
  Transmission Date: 20211014
  Serious: Yes (Other)
  Sender: FDA-Public Use
  Company Number: IT-AMGEN-ITASP2021088839

PATIENT
  Age: 46 Year
  Sex: Female

DRUGS (12)
  1. ACETYLSALICYLIC ACID [Concomitant]
     Active Substance: ASPIRIN
     Dosage: 100 MILLIGRAM, H 12
     Dates: start: 20120307
  2. L?CARNITINE [LEVOCARNITINE] [Concomitant]
     Active Substance: LEVOCARNITINE
     Dosage: 2 GRAM, EVERY DIALYSIS
     Route: 042
     Dates: start: 20201021
  3. ARANESP [Suspect]
     Active Substance: DARBEPOETIN ALFA
     Indication: PRODUCT USED FOR UNKNOWN INDICATION
     Dosage: 120 MICROGRAM, QWK (EVERY WEDNESDAY DURING DIALYSIS)
     Route: 042
     Dates: start: 20210201
  4. PANTOPRAZOLE [Concomitant]
     Active Substance: PANTOPRAZOLE
     Dosage: 40 MILLIGRAM, H 8
     Dates: start: 20111014
  5. SODIUM BICARBONATE. [Concomitant]
     Active Substance: SODIUM BICARBONATE
     Dosage: 500 MILLIGRAM, H 10?16
     Dates: start: 20180704
  6. PREDNISONE. [Concomitant]
     Active Substance: PREDNISONE
     Dosage: 5 MILLIGRAM, H 8
     Dates: start: 20111124
  7. ATENOLOL. [Concomitant]
     Active Substance: ATENOLOL
     Dosage: 50 MILLIGRAM, H 8
     Dates: start: 20111014
  8. CHOLECALCIFEROL [Concomitant]
     Active Substance: CHOLECALCIFEROL
     Dosage: 50000 UI H 12 ON EVERY SUNDAY
     Dates: start: 20201120
  9. CALCITRIOL. [Concomitant]
     Active Substance: CALCITRIOL
     Dosage: 25 MICROGRAM, PER OS EVERY DIALYSIS
     Dates: start: 20200921
  10. FERRIC CARBOXYMALTOSE [Concomitant]
     Active Substance: FERRIC CARBOXYMALTOSE
     Dosage: 200 MILLIGRAM, EVERY OTHER WEDNESDAY DURING
     Route: 042
     Dates: start: 20210225
  11. HYDROXYCHLOROQUINE [Concomitant]
     Active Substance: HYDROXYCHLOROQUINE
     Indication: SPONDYLOARTHROPATHY
     Dosage: UNK
  12. CALCIUM CARBONATE. [Concomitant]
     Active Substance: CALCIUM CARBONATE
     Dosage: 1000 MILLIGRAM, H 10?16
     Dates: start: 20210119

REACTIONS (3)
  - Hypokalaemia [Recovering/Resolving]
  - Anaemia [Unknown]
  - Drug ineffective [Unknown]

NARRATIVE: CASE EVENT DATE: 2021
